FAERS Safety Report 4978686-2 (Version None)
Quarter: 2006Q2

REPORT INFORMATION
  Report Type: 
  Country: None (occurrence: None)
  Receive Date: 20060420
  Receipt Date: 20050408
  Transmission Date: 20061013
  Serious: Yes (Hospitalization)
  Sender: FDA-Public Use
  Company Number: US-MERCK-0504USA01635

PATIENT
  Age: 70 Year
  Sex: Female
  Weight: 105 kg

DRUGS (2)
  1. VIOXX [Suspect]
     Indication: ARTHRITIS
     Route: 048
     Dates: start: 19990929, end: 20030129
  2. VIOXX [Suspect]
     Indication: PAIN MANAGEMENT
     Route: 048
     Dates: start: 19990929, end: 20030129

REACTIONS (7)
  - ARTHROPATHY [None]
  - CHEST PAIN [None]
  - CONVULSION [None]
  - EMOTIONAL DISORDER [None]
  - FOOT DEFORMITY [None]
  - ISCHAEMIC STROKE [None]
  - SHOULDER DEFORMITY [None]
